FAERS Safety Report 20968228 (Version 1)
Quarter: 2022Q2

REPORT INFORMATION
  Report Type: Spontaneous
  Country: US (occurrence: US)
  Receive Date: 20220616
  Receipt Date: 20220616
  Transmission Date: 20220720
  Serious: Yes (Other)
  Sender: FDA-Public Use
  Company Number: US-PFIZER INC-202101444425

PATIENT
  Age: 60 Year
  Sex: Male
  Weight: 89.796 kg

DRUGS (2)
  1. CHANTIX [Suspect]
     Active Substance: VARENICLINE TARTRATE
     Indication: Smoking cessation therapy
     Dosage: 1 MG
     Dates: start: 20191025
  2. CHANTIX [Suspect]
     Active Substance: VARENICLINE TARTRATE
     Dosage: 0.5 MG (START PACK, 0.5/1MG)
     Dates: start: 20191025

REACTIONS (2)
  - Renal cancer [Unknown]
  - Nightmare [Recovered/Resolved]
